FAERS Safety Report 6992357-2 (Version None)
Quarter: 2010Q3

REPORT INFORMATION
  Report Type: 
  Country: None (occurrence: None)
  Receive Date: 20100917
  Receipt Date: 20100915
  Transmission Date: 20110219
  Serious: Yes (Death, Hospitalization)
  Sender: FDA-Public Use
  Company Number: JP-SANOFI-AVENTIS-2010SA055435

PATIENT
  Age: 78 Year
  Sex: Male
  Weight: 51.5 kg

DRUGS (4)
  1. TAXOTERE [Suspect]
     Indication: PROSTATE CANCER
     Route: 042
     Dates: start: 20090930, end: 20100526
  2. DECADRON [Concomitant]
  3. APLACE [Concomitant]
  4. ETHINYL ESTRADIOL [Concomitant]

REACTIONS (1)
  - INTERSTITIAL LUNG DISEASE [None]
